FAERS Safety Report 9863053 (Version 2)
Quarter: 2014Q1

REPORT INFORMATION
  Report Type: Spontaneous
  Country: US (occurrence: US)
  Receive Date: 20140203
  Receipt Date: 20140318
  Transmission Date: 20141002
  Serious: Yes (Hospitalization, Other)
  Sender: FDA-Public Use
  Company Number: US-PFIZER INC-2014029292

PATIENT
  Age: 38 Year
  Sex: Male

DRUGS (3)
  1. DILANTIN-125 [Suspect]
     Dosage: UNK
  2. TYSABRI [Suspect]
     Indication: MULTIPLE SCLEROSIS
     Dosage: 300 MG, QM
     Route: 042
     Dates: start: 20110614, end: 20131209
  3. TYSABRI [Suspect]
     Dosage: UNK

REACTIONS (12)
  - Toxicity to various agents [Unknown]
  - Cerebrovascular accident [Unknown]
  - Convulsion [Unknown]
  - Hemiplegia [Recovering/Resolving]
  - Hypokinesia [Unknown]
  - Musculoskeletal stiffness [Unknown]
  - Neck pain [Unknown]
  - Mobility decreased [Unknown]
  - White blood cell count increased [Unknown]
  - Delirium [Unknown]
  - Muscle spasms [Unknown]
  - Head injury [Unknown]
